FAERS Safety Report 5712262-9 (Version None)
Quarter: 2008Q2

REPORT INFORMATION
  Report Type: 
  Country: None (occurrence: None)
  Receive Date: 20080418
  Receipt Date: 20080402
  Transmission Date: 20081010
  Serious: No
  Sender: FDA-Public Use
  Company Number: 002#2#2008-00214

PATIENT
  Age: 72 Year
  Sex: Female
  Weight: 83.9154 kg

DRUGS (11)
  1. NEUPRO-PATCH  (ROTIGOTINE) [Suspect]
     Indication: PARKINSON'S DISEASE
     Dosage: 2 MG/24H,L IN 1 D, TRANSDERMAL;  4MG/24H,1 IN 1 D,TRANSDERMAL
     Route: 062
     Dates: start: 20070101, end: 20080101
  2. NEUPRO-PATCH  (ROTIGOTINE) [Suspect]
     Indication: PARKINSON'S DISEASE
     Dosage: 2 MG/24H,L IN 1 D, TRANSDERMAL;  4MG/24H,1 IN 1 D,TRANSDERMAL
     Route: 062
     Dates: start: 20080201, end: 20080401
  3. NEUPRO-PATCH  (ROTIGOTINE) [Suspect]
     Indication: PARKINSON'S DISEASE
     Dosage: 2 MG/24H,L IN 1 D, TRANSDERMAL;  4MG/24H,1 IN 1 D,TRANSDERMAL
     Route: 062
     Dates: start: 20080402
  4. BETHANECHOL [Concomitant]
  5. FLOMAX [Concomitant]
  6. SIMVASTATIN [Concomitant]
  7. BUMETADINE [Concomitant]
  8. ULTRAM ER [Concomitant]
  9. TRAMADOL HCL [Concomitant]
  10. DEPAKOTE ER [Concomitant]
  11. PROPRANOLOL [Concomitant]

REACTIONS (2)
  - DIZZINESS [None]
  - PHARMACEUTICAL PRODUCT COMPLAINT [None]
